FAERS Safety Report 9039211 (Version 1)
Quarter: 2013Q1

REPORT INFORMATION
  Report Type: Spontaneous
  Country: US (occurrence: None)
  Receive Date: 20130123
  Receipt Date: 20130123
  Transmission Date: 20140127
  Serious: No
  Sender: FDA-Public Use
  Company Number: None

PATIENT
  Age: 43 Year
  Sex: Female

DRUGS (3)
  1. CIMZIA [Suspect]
     Route: 058
  2. VITAMIN C CAP [Concomitant]
  3. VITAMIN B [Concomitant]

REACTIONS (6)
  - Dizziness [None]
  - Dyspnoea [None]
  - Drug hypersensitivity [None]
  - Injection site reaction [None]
  - Paraesthesia [None]
  - Neuropathy peripheral [None]
